FAERS Safety Report 4853759-3 (Version None)
Quarter: 2005Q4

REPORT INFORMATION
  Report Type: 
  Country: None (occurrence: None)
  Receive Date: 20051212
  Receipt Date: 20051108
  Transmission Date: 20060501
  Serious: Yes (Death)
  Sender: FDA-Public Use
  Company Number: MK200512-0053-1

PATIENT
  Age: 55 Year

DRUGS (3)
  1. ACETAMINOPHEN W/ CODEINE TAB [Suspect]
     Dates: start: 20040101
  2. ACETAMINOPHEN AND HYDROCODONE BITARTRATE [Concomitant]
  3. ESCITALOPRAM OXALATE [Suspect]

REACTIONS (2)
  - COMPLETED SUICIDE [None]
  - MULTIPLE DRUG OVERDOSE INTENTIONAL [None]
